FAERS Safety Report 15287328 (Version 4)
Quarter: 2025Q3

REPORT INFORMATION
  Report Type: Spontaneous
  Country: EU (occurrence: EU)
  Receive Date: 20180817
  Receipt Date: 20250705
  Transmission Date: 20251020
  Serious: Yes (Hospitalization, Disabling, Other)
  Sender: AUROBINDO
  Company Number: EU-AUROBINDO-AUR-APL-2018-041943

PATIENT
  Age: 37 Year
  Sex: Female

DRUGS (3)
  1. AMOXICILLIN\CLAVULANIC ACID [Suspect]
     Active Substance: AMOXICILLIN\CLAVULANIC ACID
     Indication: Cystitis
     Route: 065
  2. BUTYLSCOPOLAMINE [Suspect]
     Active Substance: BUTYLSCOPOLAMINE
     Indication: Cystitis
     Route: 016
  3. FOSFOMYCIN [Suspect]
     Active Substance: FOSFOMYCIN
     Indication: Cystitis
     Route: 016

REACTIONS (12)
  - Sepsis [Unknown]
  - Hydronephrosis [Unknown]
  - Pyelonephritis acute [Unknown]
  - Back pain [Unknown]
  - Nitrituria [Unknown]
  - Murphy^s sign positive [Unknown]
  - Calculus urinary [Unknown]
  - Leukocyturia [Unknown]
  - Therapy non-responder [Unknown]
  - Pyrexia [Unknown]
  - Surgical failure [Unknown]
  - Drug ineffective [Unknown]

NARRATIVE: CASE EVENT DATE: 20151001
